FAERS Safety Report 9705153 (Version 2)
Quarter: 2014Q1

REPORT INFORMATION
  Report Type: Spontaneous
  Country: US (occurrence: US)
  Receive Date: 20131122
  Receipt Date: 20140106
  Transmission Date: 20141002
  Serious: No
  Sender: FDA-Public Use
  Company Number: US-009507513-1311USA009609

PATIENT
  Age: 83 Year
  Sex: Female
  Weight: 58.96 kg

DRUGS (10)
  1. OXYTROL FOR WOMEN [Suspect]
     Indication: POLLAKIURIA
     Dosage: 1 DF, UNKNOWN
     Route: 062
     Dates: start: 20131024, end: 20131026
  2. OXYTROL FOR WOMEN [Suspect]
     Dosage: 1 DF, UNKNOWN
     Route: 062
     Dates: start: 20131029, end: 20131102
  3. OMEPRAZOLE [Concomitant]
     Indication: ULCER
     Dosage: 20 MG, UNKNOWN
  4. LOSARTAN POTASSIUM [Concomitant]
     Indication: HYPERTENSION
     Dosage: 50 MG, UNKNOWN
  5. FOLIC ACID [Concomitant]
     Indication: ANAEMIA
     Dosage: 1 MG, UNKNOWN
  6. MELOXICAM [Concomitant]
     Indication: PAIN IN EXTREMITY
     Dosage: 15 MG, UNKNOWN
  7. RESTASIS [Concomitant]
     Indication: DRY EYE
     Dosage: UNK, UNKNOWN
  8. SPIRIVA [Concomitant]
     Indication: ASTHMA
     Dosage: 18 MICROGRAM, UNK
  9. SYMBICORT [Concomitant]
     Indication: ASTHMA
     Dosage: UNK, QD
  10. INDOMETHACIN [Concomitant]
     Indication: MUSCULOSKELETAL PAIN
     Dosage: 100 MG, PRN

REACTIONS (4)
  - Dysuria [Unknown]
  - Application site erythema [Recovered/Resolved]
  - Pruritus [Recovered/Resolved]
  - Drug effect decreased [Unknown]
